FAERS Safety Report 20421190 (Version 10)
Quarter: 2022Q2

REPORT INFORMATION
  Report Type: Report from Study
  Country: US (occurrence: US)
  Receive Date: 20220203
  Receipt Date: 20220427
  Transmission Date: 20220720
  Serious: Yes (Hospitalization, Other)
  Sender: FDA-Public Use
  Company Number: US-JNJFOC-20220116460

PATIENT
  Age: 60 Year
  Sex: Female
  Weight: 98.2 kg

DRUGS (5)
  1. EPOPROSTENOL SODIUM [Suspect]
     Active Substance: EPOPROSTENOL SODIUM
     Indication: Pulmonary arterial hypertension
     Dosage: VELETRI 1.5 MG VIAL INTRAVENOUS CONTINUOUS, VELETRI DOSE 10 NG/KG/MIN
     Route: 042
  2. EPOPROSTENOL SODIUM [Suspect]
     Active Substance: EPOPROSTENOL SODIUM
     Indication: Pulmonary hypertension
     Route: 042
  3. MACITENTAN [Suspect]
     Active Substance: MACITENTAN
     Indication: Pulmonary arterial hypertension
     Dosage: OPSUMIT 10MG ORALLY DAILY
     Route: 048
  4. SILDENAFIL CITRATE [Concomitant]
     Active Substance: SILDENAFIL CITRATE
     Indication: Product used for unknown indication
  5. AMLODIPINE [Concomitant]
     Active Substance: AMLODIPINE BESYLATE
     Indication: Product used for unknown indication

REACTIONS (19)
  - Acute kidney injury [Not Recovered/Not Resolved]
  - Device dislocation [Unknown]
  - Blood glucose increased [Unknown]
  - Hypotension [Unknown]
  - Fall [Unknown]
  - Infusion site haemorrhage [Unknown]
  - Contusion [Unknown]
  - Pain [Unknown]
  - Tremor [Unknown]
  - Dyspnoea exertional [Not Recovered/Not Resolved]
  - Abdominal discomfort [Unknown]
  - Diarrhoea [Unknown]
  - Fatigue [Unknown]
  - Arthralgia [Unknown]
  - Chest pain [Unknown]
  - Product administration interrupted [Unknown]
  - Device leakage [Unknown]
  - Device breakage [Unknown]
  - Underdose [Unknown]

NARRATIVE: CASE EVENT DATE: 20220101
